FAERS Safety Report 23977808 (Version 2)
Quarter: 2024Q3

REPORT INFORMATION
  Report Type: Spontaneous
  Country: GB (occurrence: GB)
  Receive Date: 20240614
  Receipt Date: 20240715
  Transmission Date: 20241016
  Serious: Yes (Hospitalization)
  Sender: VERTEX
  Company Number: GB-VERTEX PHARMACEUTICALS-2024-009893

PATIENT
  Sex: Female

DRUGS (2)
  1. ELEXACAFTOR\IVACAFTOR\TEZACAFTOR [Suspect]
     Active Substance: ELEXACAFTOR\IVACAFTOR\TEZACAFTOR
     Indication: Cystic fibrosis
     Dosage: 37.5 MG IVA/25 MG TEZA/50 MG ELEXA; 2 TABS IN THE MORNING
     Route: 048
     Dates: end: 202406
  2. KALYDECO [Suspect]
     Active Substance: IVACAFTOR
     Indication: Cystic fibrosis
     Dosage: 75 MG IVA TABLET; EVERY EVENING
     Route: 048
     Dates: end: 202406

REACTIONS (2)
  - Lower respiratory tract infection [Unknown]
  - Pneumonia fungal [Unknown]
